FAERS Safety Report 23239722 (Version 1)
Quarter: 2023Q4

REPORT INFORMATION
  Report Type: Spontaneous
  Country: NL (occurrence: NL)
  Receive Date: 20231129
  Receipt Date: 20231129
  Transmission Date: 20240110
  Serious: Yes (Hospitalization, Other)
  Sender: FDA-Public Use
  Company Number: None

PATIENT
  Age: 44 Year
  Sex: Female
  Weight: 90.1 kg

DRUGS (2)
  1. METOPROLOL [Suspect]
     Active Substance: METOPROLOL
     Indication: Product used for unknown indication
     Dosage: 1X PER DAY 2 PIECE
     Dates: start: 20230526
  2. GRASS POLLEN NOS [Suspect]
     Active Substance: UNSPECIFIED INGREDIENT
     Indication: Rhinitis allergic
     Dosage: 100.000 SQ-E/ML
     Dates: start: 20230622, end: 20230913

REACTIONS (1)
  - Transient ischaemic attack [Not Recovered/Not Resolved]

NARRATIVE: CASE EVENT DATE: 20230913
